FAERS Safety Report 10488446 (Version 1)
Quarter: 2014Q4

REPORT INFORMATION
  Report Type: Spontaneous
  Country: US (occurrence: None)
  Receive Date: 20141001
  Receipt Date: 20141001
  Transmission Date: 20150528
  Serious: Yes (Other)
  Sender: FDA-Public Use
  Company Number: None

PATIENT
  Age: 35 Year
  Sex: Female
  Weight: 50.8 kg

DRUGS (1)
  1. XULANE [Suspect]
     Active Substance: ETHINYL ESTRADIOL\NORELGESTROMIN
     Indication: CONTRACEPTION
     Dosage: 1 PATCH/WK 1X/WK APPLIED AS MEDICATED PATCH TO SKIN
     Route: 061
     Dates: start: 20140730, end: 20140930

REACTIONS (2)
  - Furuncle [None]
  - Acne [None]

NARRATIVE: CASE EVENT DATE: 20140930
